FAERS Safety Report 5684491-4 (Version None)
Quarter: 2008Q1

REPORT INFORMATION
  Report Type: 
  Country: None (occurrence: None)
  Receive Date: 20080328
  Receipt Date: 20080320
  Transmission Date: 20080703
  Serious: Yes (Death, Hospitalization)
  Sender: FDA-Public Use
  Company Number: JP-SANOFI-SYNTHELABO-A01200801741

PATIENT
  Sex: Male

DRUGS (4)
  1. AVASTIN [Suspect]
     Route: 041
     Dates: start: 20080109, end: 20080109
  2. ISOVORIN [Suspect]
     Dosage: UNK
     Route: 041
     Dates: start: 20080109, end: 20080110
  3. FLUOROURACIL [Suspect]
     Dosage: UNK
     Route: 042
     Dates: start: 20080109, end: 20080110
  4. ELPLAT [Suspect]
     Indication: COLON CANCER METASTATIC
     Dosage: UNK
     Route: 041
     Dates: start: 20080109, end: 20080109

REACTIONS (11)
  - ACUTE RESPIRATORY DISTRESS SYNDROME [None]
  - ALANINE AMINOTRANSFERASE INCREASED [None]
  - ASPARTATE AMINOTRANSFERASE INCREASED [None]
  - DISEASE PROGRESSION [None]
  - HYPOAESTHESIA [None]
  - INTERSTITIAL LUNG DISEASE [None]
  - NEUTROPENIA [None]
  - PLATELET COUNT DECREASED [None]
  - PNEUMONIA [None]
  - PULMONARY HAEMORRHAGE [None]
  - RESPIRATORY FAILURE [None]
